FAERS Safety Report 4273314-6 (Version None)
Quarter: 2004Q1

REPORT INFORMATION
  Report Type: 
  Country: None (occurrence: None)
  Receive Date: 20040115
  Receipt Date: 20040115
  Transmission Date: 20041129
  Serious: Yes (Other)
  Sender: FDA-Public Use
  Company Number: None

PATIENT
  Age: 61 Year
  Sex: Male

DRUGS (12)
  1. FORADIL [Suspect]
     Indication: CHRONIC OBSTRUCTIVE AIRWAYS DISEASE
     Dosage: INH BID
     Route: 055
     Dates: start: 20030818, end: 20030825
  2. ALBUTEROL/IPRATROPIUM IHN [Concomitant]
  3. DIGOXIN [Concomitant]
  4. LASIX [Concomitant]
  5. INSULIN [Concomitant]
  6. LISINOPRIL [Concomitant]
  7. LORATADINE [Concomitant]
  8. KCL TAB [Concomitant]
  9. RABEPRAZOLE SODIUM [Concomitant]
  10. WARFARIN SODIUM [Concomitant]
  11. SENNOSIDES [Concomitant]
  12. M.V.I. [Concomitant]

REACTIONS (2)
  - PRURITUS [None]
  - RASH [None]
